FAERS Safety Report 23326326 (Version 1)
Quarter: 2023Q4

REPORT INFORMATION
  Report Type: Spontaneous
  Country: US (occurrence: None)
  Receive Date: 20231220
  Receipt Date: 20231220
  Transmission Date: 20240110
  Serious: Yes (Other)
  Sender: FDA-Public Use
  Company Number: None

PATIENT
  Sex: Male

DRUGS (9)
  1. RETACRIT [Suspect]
     Active Substance: EPOETIN ALFA-EPBX
     Indication: Anaemia
     Dosage: 3000 UNIT/ML INJECTION ??INJECT 3,000 UNITS (1 ML) UNDER THE SKIN (SUBCUTANEOUS INJECTION) ONCE WEEK
     Dates: start: 20230622
  2. ATORVASTATIN [Concomitant]
  3. CARVEDILOL [Concomitant]
     Active Substance: CARVEDILOL
  4. ELIQUIS [Concomitant]
     Active Substance: APIXABAN
  5. FLECAINIDE [Concomitant]
  6. PROCARDIA XL [Concomitant]
  7. TERAZOSIN CAP [Concomitant]
  8. VITAMIN D3 [Concomitant]
  9. ZETIA TAB [Concomitant]

REACTIONS (1)
  - Renal transplant [None]
